FAERS Safety Report 9446045 (Version 2)
Quarter: 2013Q4

REPORT INFORMATION
  Report Type: Spontaneous
  Country: JP (occurrence: JP)
  Receive Date: 20130807
  Receipt Date: 20131226
  Transmission Date: 20140711
  Serious: Yes (Other)
  Sender: FDA-Public Use
  Company Number: JP-ASTRAZENECA-2013SE60823

PATIENT
  Age: 98 Year
  Sex: Female

DRUGS (13)
  1. SEROQUEL [Suspect]
     Route: 048
     Dates: end: 20130618
  2. MILRILA [Suspect]
     Indication: CARDIAC FAILURE CONGESTIVE
     Route: 041
     Dates: start: 20130614, end: 20130618
  3. BROTIZOLAM [Concomitant]
  4. ALFAROL [Concomitant]
  5. MUCOSTA [Concomitant]
  6. SENNOSIDE [Concomitant]
  7. MYSLEE [Concomitant]
  8. SAMSCA [Concomitant]
  9. RISPERIDONE [Concomitant]
     Route: 048
  10. SERENACE [Concomitant]
  11. BFLUID [Concomitant]
  12. FUROSEMIDE [Concomitant]
  13. MAGMITT [Concomitant]

REACTIONS (1)
  - Torsade de pointes [Recovered/Resolved]
